FAERS Safety Report 25918436 (Version 1)
Quarter: 2025Q4

REPORT INFORMATION
  Report Type: Other
  Country: EU (occurrence: EU)
  Receive Date: 20251014
  Receipt Date: 20251014
  Transmission Date: 20260117
  Serious: Yes (Hospitalization)
  Sender: ZYDUS PHARM
  Company Number: None

PATIENT

DRUGS (1)
  1. TAMOXIFEN [Suspect]
     Active Substance: TAMOXIFEN
     Indication: Breast cancer
     Dosage: 10 MILLIGRAM, QD
     Route: 048
     Dates: start: 202204, end: 20250409

REACTIONS (1)
  - Steatohepatitis [Not Recovered/Not Resolved]

NARRATIVE: CASE EVENT DATE: 20241119
